FAERS Safety Report 4754586-8 (Version None)
Quarter: 2005Q3

REPORT INFORMATION
  Report Type: 
  Country: None (occurrence: None)
  Receive Date: 20050829
  Receipt Date: 20050310
  Transmission Date: 20060218
  Serious: Yes (Hospitalization, Other)
  Sender: FDA-Public Use
  Company Number: US-MERCK-0503USA02334

PATIENT
  Age: 64 Year
  Sex: Female
  Weight: 65 kg

DRUGS (30)
  1. VIOXX [Suspect]
     Indication: ARTHRALGIA
     Route: 048
     Dates: start: 19991101, end: 20040901
  2. VIOXX [Suspect]
     Indication: ARTHRITIS
     Route: 048
     Dates: start: 19991101, end: 20040901
  3. PREMARIN [Concomitant]
     Route: 065
     Dates: start: 19990101
  4. LIPITOR [Concomitant]
     Route: 065
     Dates: start: 19981101
  5. TRICOR [Concomitant]
     Route: 065
     Dates: start: 20000401
  6. PREVACID [Concomitant]
     Route: 065
  7. ZYRTEC [Concomitant]
     Route: 065
  8. FOSAMAX [Concomitant]
     Route: 065
  9. FLONASE [Concomitant]
     Route: 065
  10. ACETAMINOPHEN AND HYDROCODONE BITARTRATE [Concomitant]
     Route: 065
  11. SULFAMETHOXAZOLE AND TRIMETHOPRIM [Concomitant]
     Route: 065
  12. ALLEGRA [Concomitant]
     Route: 065
  13. PENLAC [Concomitant]
     Route: 065
  14. TENORMIN [Concomitant]
     Route: 065
     Dates: start: 20000901
  15. ZESTRIL [Concomitant]
     Route: 065
     Dates: start: 20000901
  16. NITROQUICK [Concomitant]
     Route: 065
     Dates: start: 20000901
  17. IMDUR [Concomitant]
     Route: 065
     Dates: start: 20000901
  18. GENTAMICIN [Concomitant]
     Route: 065
  19. NORVASC [Concomitant]
     Route: 065
     Dates: start: 20020101
  20. HYDROCHLOROTHIAZIDE [Concomitant]
     Route: 065
     Dates: start: 20000201, end: 20030515
  21. NAPROXEN [Concomitant]
     Route: 065
     Dates: start: 20020801, end: 20021101
  22. METHYLPREDNISOLONE [Concomitant]
     Route: 065
  23. TRIAMTERENE [Concomitant]
     Route: 065
  24. ZOLOFT [Concomitant]
     Route: 065
     Dates: start: 20030501, end: 20030801
  25. EFFEXOR [Concomitant]
     Route: 065
  26. NEURONTIN [Concomitant]
     Route: 065
     Dates: start: 20030801
  27. LEVAQUIN [Concomitant]
     Route: 065
  28. RHINOCORT [Concomitant]
     Route: 065
  29. PROTONIX [Concomitant]
     Route: 065
  30. DILTIAZEM HCL [Concomitant]
     Route: 065
     Dates: start: 20020101

REACTIONS (34)
  - ABDOMINAL PAIN [None]
  - ACCELERATED HYPERTENSION [None]
  - ANGINA PECTORIS [None]
  - ARTERIOSPASM CORONARY [None]
  - ARTHRITIS [None]
  - ARTHROPATHY [None]
  - ATHEROSCLEROSIS [None]
  - BACK PAIN [None]
  - BRUXISM [None]
  - CHEST PAIN [None]
  - CORONARY ARTERY DISEASE [None]
  - CYST [None]
  - DEEP VEIN THROMBOSIS [None]
  - DEPRESSION [None]
  - DYSPNOEA [None]
  - EMOTIONAL DISTRESS [None]
  - FATIGUE [None]
  - FOOT FRACTURE [None]
  - GASTROOESOPHAGEAL REFLUX DISEASE [None]
  - HYPERTENSION [None]
  - INSOMNIA [None]
  - LYMPHADENITIS [None]
  - MITRAL VALVE INCOMPETENCE [None]
  - MYOCARDIAL INFARCTION [None]
  - MYOCARDIAL ISCHAEMIA [None]
  - NAUSEA [None]
  - NECK PAIN [None]
  - OEDEMA PERIPHERAL [None]
  - PRINZMETAL ANGINA [None]
  - PULMONARY EMBOLISM [None]
  - RENAL ARTERY FIBROMUSCULAR DYSPLASIA [None]
  - RESTLESS LEGS SYNDROME [None]
  - SKIN DISCOLOURATION [None]
  - SLEEP APNOEA SYNDROME [None]
